FAERS Safety Report 22651194 (Version 1)
Quarter: 2023Q2

REPORT INFORMATION
  Report Type: Spontaneous
  Country: US (occurrence: None)
  Receive Date: 20230627
  Receipt Date: 20230627
  Transmission Date: 20230721
  Serious: Yes (Hospitalization)
  Sender: FDA-Public Use
  Company Number: None

PATIENT
  Sex: Female

DRUGS (2)
  1. NIVESTYM [Suspect]
     Active Substance: FILGRASTIM-AAFI
     Indication: Neutropenia
     Dosage: OTHER STRENGTH : 480MCG/.8M;?FREQUENCY : DAILY;?
     Route: 058
     Dates: start: 202306
  2. THALOMID [Concomitant]
     Active Substance: THALIDOMIDE

REACTIONS (3)
  - Mouth haemorrhage [None]
  - Palpitations [None]
  - Therapy interrupted [None]
